FAERS Safety Report 19818256 (Version 2)
Quarter: 2021Q3

REPORT INFORMATION
  Report Type: Spontaneous
  Country: FI (occurrence: FI)
  Receive Date: 20210911
  Receipt Date: 20210913
  Transmission Date: 20211014
  Serious: Yes (Other)
  Sender: FDA-Public Use
  Company Number: FI-UCBSA-2021004100

PATIENT
  Age: 35 Year
  Sex: Female

DRUGS (1)
  1. CIMZIA [Suspect]
     Active Substance: CERTOLIZUMAB PEGOL
     Indication: PSORIASIS
     Dosage: 200 MILLIGRAM, EV 2 WEEKS(QOW)
     Route: 058
     Dates: start: 20200625

REACTIONS (4)
  - Maternal exposure during pregnancy [Unknown]
  - Anembryonic gestation [Recovered/Resolved]
  - Abortion missed [Recovered/Resolved]
  - Maternal exposure before pregnancy [Unknown]
